FAERS Safety Report 8131156-5 (Version None)
Quarter: 2012Q1

REPORT INFORMATION
  Report Type: 
  Country: None (occurrence: None)
  Receive Date: 20120207
  Receipt Date: 20120124
  Transmission Date: 20120608
  Serious: Yes (Hospitalization)
  Sender: FDA-Public Use
  Company Number: 2012AL000008

PATIENT
  Age: 41 Year
  Sex: Female
  Weight: 85.7298 kg

DRUGS (1)
  1. FOLOTYN [Suspect]
     Indication: MYCOSIS FUNGOIDES
     Dosage: 50 MG;   ;IV
     Route: 042
     Dates: start: 20111207

REACTIONS (4)
  - PROTEUS INFECTION [None]
  - CANDIDIASIS [None]
  - BLOOD CULTURE POSITIVE [None]
  - STAPHYLOCOCCAL INFECTION [None]
